FAERS Safety Report 5338596-8 (Version None)
Quarter: 2007Q2

REPORT INFORMATION
  Report Type: 
  Country: None (occurrence: None)
  Receive Date: 20070322
  Receipt Date: 20060711
  Transmission Date: 20071010
  Serious: Yes (Other)
  Sender: FDA-Public Use
  Company Number: 200612562BCC

PATIENT
  Age: 80 Year
  Sex: Female
  Weight: 74.8435 kg

DRUGS (4)
  1. ALEVE (CAPLET) [Suspect]
     Indication: PAIN IN EXTREMITY
     Dosage: 440 MG, BID, ORAL
     Route: 048
     Dates: start: 20060401, end: 20060601
  2. NORVASC [Concomitant]
  3. METOPROLOL SUCCINATE [Concomitant]
  4. POTASSIUM ACETATE [Concomitant]

REACTIONS (1)
  - RECTAL HAEMORRHAGE [None]
